FAERS Safety Report 10020849 (Version 1)
Quarter: 2014Q1

REPORT INFORMATION
  Report Type: Spontaneous
  Country: US (occurrence: None)
  Receive Date: 20140318
  Receipt Date: 20140318
  Transmission Date: 20141002
  Serious: No
  Sender: FDA-Public Use
  Company Number: None

PATIENT
  Age: 91 Year
  Sex: Female
  Weight: 68.2 kg

DRUGS (1)
  1. AMLODIPINE [Suspect]
     Indication: ARRHYTHMIA
     Dosage: FEW YEARS.

REACTIONS (2)
  - Hallucination [None]
  - Sleep disorder [None]
